FAERS Safety Report 11222799 (Version 3)
Quarter: 2015Q3

REPORT INFORMATION
  Report Type: Spontaneous
  Country: US (occurrence: US)
  Receive Date: 20150626
  Receipt Date: 20150807
  Transmission Date: 20151125
  Serious: Yes (Other)
  Sender: FDA-Public Use
  Company Number: US-PFIZER INC-2015210525

PATIENT
  Age: 28 Year
  Sex: Male
  Weight: 65.76 kg

DRUGS (3)
  1. ATORVASTATIN [Concomitant]
     Active Substance: ATORVASTATIN
     Indication: BLOOD CHOLESTEROL INCREASED
     Dosage: 18 MG, 1X/DAY
  2. DILANTIN [Suspect]
     Active Substance: PHENYTOIN
     Indication: EPILEPSY
     Dosage: 300 MG, 1X/DAY
     Route: 048
     Dates: start: 201406
  3. DILANTIN [Suspect]
     Active Substance: PHENYTOIN
     Dosage: 100 MG, 1X/DAY
     Route: 048

REACTIONS (23)
  - Hypophagia [Unknown]
  - Oral discomfort [Unknown]
  - Gingival swelling [Recovering/Resolving]
  - Tongue dry [Unknown]
  - Polyuria [Unknown]
  - Neuropathy peripheral [Not Recovered/Not Resolved]
  - Sensitivity to weather change [Unknown]
  - Burning mouth syndrome [Unknown]
  - Protrusion tongue [Unknown]
  - Chest discomfort [Unknown]
  - Anticonvulsant drug level increased [Unknown]
  - Glossodynia [Unknown]
  - Jaw disorder [Unknown]
  - Swollen tongue [Unknown]
  - Lymphadenopathy [Unknown]
  - Cranial nerve disorder [Unknown]
  - Dry mouth [Recovering/Resolving]
  - Aptyalism [Recovering/Resolving]
  - Mouth swelling [Unknown]
  - Dysgeusia [Unknown]
  - Oral pain [Unknown]
  - Hypoaesthesia [Not Recovered/Not Resolved]
  - Paraesthesia [Not Recovered/Not Resolved]

NARRATIVE: CASE EVENT DATE: 201409
